FAERS Safety Report 7215814-2 (Version None)
Quarter: 2011Q1

REPORT INFORMATION
  Report Type: 
  Country: None (occurrence: None)
  Receive Date: 20110107
  Receipt Date: 20101227
  Transmission Date: 20110831
  Serious: Yes (Hospitalization, Other)
  Sender: FDA-Public Use
  Company Number: JP-PFIZER INC-2010154839

PATIENT
  Age: 66 Year
  Sex: Male
  Weight: 52.9 kg

DRUGS (3)
  1. LIPITOR [Suspect]
     Indication: DYSLIPIDAEMIA
     Dosage: 10 MG, UID/QD
     Route: 048
     Dates: start: 20080408, end: 20101104
  2. MEDICON [Suspect]
     Indication: COUGH
     Dosage: 15 MG, 3X/DAY
     Route: 048
     Dates: start: 20101029, end: 20101104
  3. KLARICID [Concomitant]
     Dosage: 1 TABLET TWICE DAILY
     Dates: start: 20101022

REACTIONS (7)
  - HYPEREOSINOPHILIC SYNDROME [None]
  - EOSINOPHILIA [None]
  - URTICARIA [None]
  - EOSINOPHILIC PNEUMONIA [None]
  - INTERSTITIAL LUNG DISEASE [None]
  - DRUG ERUPTION [None]
  - ALVEOLITIS [None]
